FAERS Safety Report 17658411 (Version 1)
Quarter: 2020Q2

REPORT INFORMATION
  Report Type: Spontaneous
  Country: FR (occurrence: FR)
  Receive Date: 20200412
  Receipt Date: 20200412
  Transmission Date: 20200713
  Serious: Yes (Hospitalization)
  Sender: FDA-Public Use
  Company Number: FR-AUROBINDO-AUR-APL-2020-017440

PATIENT
  Age: 49 Year
  Sex: Female

DRUGS (8)
  1. DESONIDE. [Suspect]
     Active Substance: DESONIDE
     Indication: DERMATITIS ATOPIC
     Dosage: UNK
     Route: 065
  2. FLUTICASONE;SALMETEROL [Suspect]
     Active Substance: FLUTICASONE PROPIONATE\SALMETEROL XINAFOATE
     Indication: DERMATITIS ATOPIC
     Dosage: 550 MICROGRAM, TWO TIMES A DAY
  3. CICLOSPORIN [Suspect]
     Active Substance: CYCLOSPORINE
     Indication: DERMATITIS ATOPIC
     Dosage: UNK
     Route: 065
  4. OMALIZUMAB. [Suspect]
     Active Substance: OMALIZUMAB
     Indication: DERMATITIS ATOPIC
     Dosage: 300 MILLIGRAM ONCE EVERY 4 WEEKS
     Route: 065
  5. CETIRIZINE [Suspect]
     Active Substance: CETIRIZINE HYDROCHLORIDE
     Indication: DERMATITIS ATOPIC
     Dosage: 10 MILLIGRAM, ONCE A DAY
     Route: 065
  6. TACROLIMUS. [Suspect]
     Active Substance: TACROLIMUS
     Indication: DERMATITIS ATOPIC
     Dosage: UNK
     Route: 065
  7. AZATHIOPRINE. [Suspect]
     Active Substance: AZATHIOPRINE
     Indication: DERMATITIS ATOPIC
     Dosage: UNK
     Route: 065
  8. METHOTREXATE. [Suspect]
     Active Substance: METHOTREXATE
     Indication: DERMATITIS ATOPIC
     Dosage: UNK
     Route: 065

REACTIONS (2)
  - Treatment failure [Unknown]
  - Off label use [Unknown]
